FAERS Safety Report 8236621-8 (Version None)
Quarter: 2012Q1

REPORT INFORMATION
  Report Type: 
  Country: None (occurrence: None)
  Receive Date: 20120327
  Receipt Date: 20120321
  Transmission Date: 20120608
  Serious: Yes (Other)
  Sender: FDA-Public Use
  Company Number: CA-JNJFOC-20120311493

PATIENT
  Sex: Male
  Weight: 99.79 kg

DRUGS (7)
  1. LEVAQUIN [Suspect]
     Indication: BRONCHITIS
     Route: 048
     Dates: start: 20120308, end: 20120316
  2. LEVOBUNOLOL HCL [Concomitant]
     Indication: GLAUCOMA
     Route: 047
  3. METFORMIN HCL [Concomitant]
     Indication: HYPERTENSION
     Route: 048
  4. XALATAN [Concomitant]
     Indication: GLAUCOMA
     Route: 047
  5. AVASTIN [Concomitant]
     Indication: RETINAL HAEMORRHAGE
     Route: 065
  6. RAMIPRIL [Concomitant]
     Indication: HYPERTENSION
     Route: 048
  7. LIPITOR [Concomitant]
     Indication: BLOOD CHOLESTEROL
     Route: 048

REACTIONS (2)
  - PAIN IN EXTREMITY [None]
  - TENDONITIS [None]
